FAERS Safety Report 8378361-0 (Version None)
Quarter: 2012Q2

REPORT INFORMATION
  Report Type: 
  Country: None (occurrence: None)
  Receive Date: 20120522
  Receipt Date: 20120517
  Transmission Date: 20120825
  Serious: Yes (Hospitalization)
  Sender: FDA-Public Use
  Company Number: CO-ELI_LILLY_AND_COMPANY-CO201204001642

PATIENT
  Sex: Male

DRUGS (4)
  1. HUMULIN N [Suspect]
     Dosage: 10 U, EACH EVENING
     Route: 058
     Dates: start: 20120510
  2. GLYBURIDE [Concomitant]
     Dosage: UNK
     Dates: end: 20120510
  3. METFORMIN HCL [Concomitant]
     Dosage: UNK
  4. HUMULIN N [Suspect]
     Indication: TYPE 2 DIABETES MELLITUS
     Dosage: 10 U, QD
     Route: 058
     Dates: start: 20090101, end: 20120101

REACTIONS (2)
  - DIABETIC COMA [None]
  - HAEMOPTYSIS [None]
